FAERS Safety Report 10387109 (Version 1)
Quarter: 2014Q3

REPORT INFORMATION
  Report Type: Spontaneous
  Country: US (occurrence: None)
  Receive Date: 20140814
  Receipt Date: 20140814
  Transmission Date: 20150326
  Serious: No
  Sender: FDA-Public Use
  Company Number: None

PATIENT

DRUGS (1)
  1. RECLAST [Suspect]
     Active Substance: ZOLEDRONIC ACID
     Indication: OSTEOPOROSIS
     Dates: start: 20140805, end: 20140805

REACTIONS (6)
  - Myalgia [None]
  - Dyspnoea [None]
  - Bone pain [None]
  - Pain [None]
  - Delirium [None]
  - Joint swelling [None]

NARRATIVE: CASE EVENT DATE: 20140805
